FAERS Safety Report 16163737 (Version 1)
Quarter: 2019Q2

REPORT INFORMATION
  Report Type: Report from Study
  Country: GB (occurrence: GB)
  Receive Date: 20190405
  Receipt Date: 20190405
  Transmission Date: 20190711
  Serious: Yes (Life-Threatening, Hospitalization)
  Sender: FDA-Public Use
  Company Number: GB-PFIZER INC-2019145639

PATIENT
  Age: 33 Year
  Sex: Female

DRUGS (2)
  1. METHOTREXATE SODIUM. [Suspect]
     Active Substance: METHOTREXATE SODIUM
     Indication: PSORIATIC ARTHROPATHY
     Dosage: UNK, AROUND 1 YEAR
     Route: 065
     Dates: start: 2014, end: 2015
  2. SULFASALAZINE. [Suspect]
     Active Substance: SULFASALAZINE
     Indication: PSORIATIC ARTHROPATHY
     Dosage: UNK, FOR 8 YEARS
     Route: 065
     Dates: end: 2015

REACTIONS (2)
  - Decreased immune responsiveness [Recovered/Resolved]
  - Meningitis viral [Recovered/Resolved]

NARRATIVE: CASE EVENT DATE: 2015
